FAERS Safety Report 12305974 (Version 27)
Quarter: 2019Q3

REPORT INFORMATION
  Report Type: Report from Study
  Country: DE (occurrence: DE)
  Receive Date: 20160426
  Receipt Date: 20190916
  Transmission Date: 20191004
  Serious: Yes (Hospitalization, Other)
  Sender: FDA-Public Use
  Company Number: DE-SA-2016SA066616

PATIENT
  Age: 43 Year
  Sex: Female
  Weight: 74 kg

DRUGS (34)
  1. ALEMTUZUMAB [Suspect]
     Active Substance: ALEMTUZUMAB
     Dosage: 12 MG, UNK
     Route: 041
     Dates: start: 20170201, end: 20170203
  2. BACLOFEN. [Concomitant]
     Active Substance: BACLOFEN
     Dosage: 5 MG,BID
     Route: 048
     Dates: start: 2010
  3. PANTOTHENIC ACID [Concomitant]
     Active Substance: PANTOTHENIC ACID
     Dosage: UNK UNK,UNK
     Route: 065
  4. THIAMINE HYDROCHLORIDE. [Concomitant]
     Active Substance: THIAMINE HYDROCHLORIDE
     Dosage: UNK UNK,UNK
     Route: 065
  5. PARACETAMOL [Concomitant]
     Active Substance: ACETAMINOPHEN
     Indication: PREMEDICATION
     Dosage: 500 MG, BID
     Route: 048
     Dates: start: 20170201, end: 20170203
  6. METHYLPREDNISOLONE. [Concomitant]
     Active Substance: METHYLPREDNISOLONE
     Dosage: 40 MG, QD
     Route: 048
     Dates: start: 20160411, end: 20160415
  7. RANITIDINE. [Concomitant]
     Active Substance: RANITIDINE
     Indication: PREMEDICATION
     Dosage: 300 MG,1X
     Route: 048
     Dates: start: 20170131, end: 20170131
  8. RANITIDINE. [Concomitant]
     Active Substance: RANITIDINE
     Dosage: 300 MG, BID
     Route: 048
     Dates: start: 20170201, end: 20170207
  9. DEKRISTOL [Concomitant]
     Active Substance: CHOLECALCIFEROL
     Indication: VITAMIN D DEFICIENCY
     Dosage: 20.000 IU, QW
     Route: 048
     Dates: start: 2013
  10. MAGNESIUM [Concomitant]
     Active Substance: MAGNESIUM
     Indication: MUSCLE SPASMS
     Dosage: 100 MG,BID
     Route: 048
  11. PYRIDOXINE HYDROCHLORIDE. [Concomitant]
     Active Substance: PYRIDOXINE HYDROCHLORIDE
     Dosage: UNK UNK,UNK
     Route: 065
  12. INFLUVAC [Concomitant]
     Active Substance: INFLUENZA VIRUS VACCINE TRIVALENT TYPE A+B
     Indication: PROPHYLAXIS
     Dosage: 0.5 ML, 1X
     Route: 030
     Dates: start: 20161214, end: 20161214
  13. PANTOPRAZOL [PANTOPRAZOLE] [Concomitant]
     Active Substance: PANTOPRAZOLE
     Indication: PROPHYLAXIS
     Dosage: 40 MG, QD
     Route: 048
     Dates: start: 20170408, end: 20170506
  14. ALEMTUZUMAB [Suspect]
     Active Substance: ALEMTUZUMAB
     Dosage: 12 MG, UNK
     Route: 041
     Dates: start: 20150218, end: 20150220
  15. ACICLOVIR [Concomitant]
     Active Substance: ACYCLOVIR
     Indication: PROPHYLAXIS
     Dosage: 200 MG, 1X
     Route: 048
     Dates: start: 20170131, end: 20170131
  16. BACLOFEN. [Concomitant]
     Active Substance: BACLOFEN
     Indication: MUSCLE SPASTICITY
     Dosage: 10 MG,UNK
     Route: 048
     Dates: start: 2012
  17. METHYLPREDNISOLONE. [Concomitant]
     Active Substance: METHYLPREDNISOLONE
     Dosage: 40 MG, QD
     Route: 048
     Dates: start: 20160402, end: 20160405
  18. MAGNESIUM [Concomitant]
     Active Substance: MAGNESIUM
     Dosage: 375 MG, BID
     Route: 048
     Dates: start: 2010
  19. RIBOFLAVIN [Concomitant]
     Active Substance: RIBOFLAVIN
     Dosage: UNK UNK,UNK
     Route: 065
  20. ACICLOVIR [Concomitant]
     Active Substance: ACYCLOVIR
     Dosage: 200 MG, BID
     Route: 065
     Dates: start: 20150218, end: 20150318
  21. DEKRISTOL [Concomitant]
     Active Substance: CHOLECALCIFEROL
     Dosage: 20000 IU,QW
     Route: 048
     Dates: start: 20140101
  22. URBASON [METHYLPREDNISOLONE] [Concomitant]
     Active Substance: METHYLPREDNISOLONE
     Dosage: 1000 MG, QD
     Route: 042
     Dates: start: 20161229, end: 20161231
  23. AERIUS (DESLORATADINE) [Concomitant]
     Active Substance: DESLORATADINE
     Dosage: 5 MG, BID
     Route: 048
     Dates: start: 20170201, end: 20170207
  24. ALEMTUZUMAB [Suspect]
     Active Substance: ALEMTUZUMAB
     Indication: MULTIPLE SCLEROSIS
     Dosage: 12 MG, UNK
     Route: 041
     Dates: start: 20140217, end: 20140221
  25. ACICLOVIR [Concomitant]
     Active Substance: ACYCLOVIR
     Indication: PROPHYLAXIS
     Dosage: 200 MG
     Route: 048
     Dates: start: 20170201, end: 20170227
  26. URBASON [METHYLPREDNISOLONE] [Concomitant]
     Active Substance: METHYLPREDNISOLONE
     Indication: PREMEDICATION
     Dosage: 1000 MG, QD
     Route: 042
     Dates: start: 20170201, end: 20170203
  27. ACICLOVIR [Concomitant]
     Active Substance: ACYCLOVIR
     Dosage: 200 MG, BID
     Route: 065
     Dates: start: 20170201, end: 20170301
  28. MAGNESIUM [Concomitant]
     Active Substance: MAGNESIUM
     Dosage: 375 MG,BID
     Route: 048
     Dates: start: 20120101, end: 2017
  29. METHYLPREDNISOLONE. [Concomitant]
     Active Substance: METHYLPREDNISOLONE
     Dosage: 1000 MG, QD
     Route: 065
     Dates: start: 20150218, end: 20150220
  30. BACLOFEN. [Concomitant]
     Active Substance: BACLOFEN
     Dosage: 10 MG (HALF), BID
     Route: 048
     Dates: start: 20100101
  31. AERIUS (DESLORATADINE) [Concomitant]
     Active Substance: DESLORATADINE
     Indication: PREMEDICATION
     Dosage: 5 MG, UNK
     Route: 048
     Dates: start: 20170131, end: 20170131
  32. AERIUS (DESLORATADINE) [Concomitant]
     Active Substance: DESLORATADINE
     Dosage: 5 MG, UNK
     Dates: start: 20170201, end: 20170203
  33. METHYLPREDNISOLONE. [Concomitant]
     Active Substance: METHYLPREDNISOLONE
     Dosage: UNK, UNK
     Route: 065
     Dates: start: 201612
  34. RANITIDINE. [Concomitant]
     Active Substance: RANITIDINE
     Dosage: 300 MG, UNK
     Route: 065
     Dates: start: 20170201, end: 20170203

REACTIONS (18)
  - Colitis [Not Recovered/Not Resolved]
  - Nasopharyngitis [Unknown]
  - Abdominal pain [Not Recovered/Not Resolved]
  - Eye pain [Recovered/Resolved]
  - Dyspnoea [Recovered/Resolved]
  - Foot fracture [Recovered/Resolved]
  - Asthenia [Recovering/Resolving]
  - Fatigue [Recovered/Resolved]
  - Influenza [Recovered/Resolved]
  - Hypothyroidism [Recovered/Resolved]
  - Cough [Recovered/Resolved]
  - Sneezing [Recovered/Resolved]
  - Immune thrombocytopenic purpura [Recovered/Resolved]
  - Multiple sclerosis relapse [Recovered/Resolved]
  - Periodontitis [Recovered/Resolved]
  - Thrombocytopenia [Recovered/Resolved]
  - Gait disturbance [Recovering/Resolving]
  - Inflammation [Recovered/Resolved]

NARRATIVE: CASE EVENT DATE: 20150219
